FAERS Safety Report 10089374 (Version 3)
Quarter: 2015Q1

REPORT INFORMATION
  Report Type: Spontaneous
  Country: US (occurrence: US)
  Receive Date: 20140421
  Receipt Date: 20150227
  Transmission Date: 20150720
  Serious: Yes (Other)
  Sender: FDA-Public Use
  Company Number: US-PFIZER INC-2014107502

PATIENT
  Sex: Female

DRUGS (1)
  1. LYRICA [Suspect]
     Active Substance: PREGABALIN
     Dosage: UNK

REACTIONS (6)
  - Wrist fracture [Unknown]
  - Paraesthesia [Unknown]
  - Burning sensation [Unknown]
  - Irritability [Unknown]
  - Pain [Unknown]
  - Emotional disorder [Unknown]
